FAERS Safety Report 6389475-9 (Version None)
Quarter: 2009Q4

REPORT INFORMATION
  Report Type: 
  Country: None (occurrence: None)
  Receive Date: 20091006
  Receipt Date: 20090928
  Transmission Date: 20100525
  Serious: Yes (Death, Life-Threatening, Hospitalization)
  Sender: FDA-Public Use
  Company Number: FR-ROCHE-597602

PATIENT
  Sex: Male
  Weight: 61 kg

DRUGS (6)
  1. MYCOPHENOLATE MOFETIL [Suspect]
     Indication: LIVER TRANSPLANT
     Dosage: OTHER STRENGTH REPORTED AS 500 MG. LAST DOSE PRIOR TO EVENT ON 07 NOV 2008
     Route: 048
     Dates: end: 20081203
  2. PROGRAF [Suspect]
     Indication: DRUG USE FOR UNKNOWN INDICATION
     Route: 065
     Dates: start: 20080513
  3. INIPOMP [Concomitant]
     Dates: start: 20080513, end: 20081203
  4. ZOPHREN [Concomitant]
     Dates: end: 20081203
  5. HEPSERA [Concomitant]
     Dates: start: 20080101, end: 20081203
  6. ROACCUTANE [Concomitant]
     Dosage: DRUG REPORTED AS ROUACCYTE
     Dates: start: 20080519, end: 20081203

REACTIONS (1)
  - HEPATITIS C [None]
